FAERS Safety Report 21328645 (Version 1)
Quarter: 2022Q3

REPORT INFORMATION
  Report Type: Spontaneous
  Country: CN (occurrence: CN)
  Receive Date: 20220913
  Receipt Date: 20220913
  Transmission Date: 20221027
  Serious: Yes (Hospitalization)
  Sender: FDA-Public Use
  Company Number: CN-BAYER-2022A124300

PATIENT
  Age: 57 Year
  Sex: Male
  Weight: 68.3 kg

DRUGS (3)
  1. STIVARGA [Suspect]
     Active Substance: REGORAFENIB
     Indication: Rectal cancer
     Dosage: 160 MG, QD
     Route: 048
     Dates: start: 20220329, end: 20220616
  2. STIVARGA [Suspect]
     Active Substance: REGORAFENIB
     Indication: Metastases to lung
  3. TISLELIZUMAB [Concomitant]
     Active Substance: TISLELIZUMAB
     Dosage: 200 ML, Q3WK
     Route: 041
     Dates: start: 20220309, end: 20220524

REACTIONS (14)
  - Proteinuria [None]
  - Blood creatinine increased [None]
  - Rash erythematous [Recovering/Resolving]
  - Rash papular [Recovering/Resolving]
  - Rash vesicular [Recovering/Resolving]
  - Scrotal erythema [Recovering/Resolving]
  - Scrotum erosion [Recovering/Resolving]
  - Skin warm [None]
  - Paronychia [None]
  - Nail hypertrophy [None]
  - Nail discolouration [None]
  - Oedema peripheral [None]
  - Joint range of motion decreased [None]
  - Pain of skin [Recovering/Resolving]

NARRATIVE: CASE EVENT DATE: 20220501
